FAERS Safety Report 21784946 (Version 2)
Quarter: 2023Q1

REPORT INFORMATION
  Report Type: Report from Study
  Country: VN (occurrence: VN)
  Receive Date: 20221227
  Receipt Date: 20230103
  Transmission Date: 20230417
  Serious: Yes (Hospitalization)
  Sender: FDA-Public Use
  Company Number: VN-PFIZER INC-PV202200127827

PATIENT
  Age: 57 Year
  Sex: Male
  Weight: 53 kg

DRUGS (7)
  1. LINEZOLID [Suspect]
     Active Substance: LINEZOLID
     Dosage: 600 MG
     Route: 048
     Dates: start: 20221202, end: 20221216
  2. DELAMANID [Suspect]
     Active Substance: DELAMANID
     Dosage: 50 MG
     Route: 048
     Dates: start: 20221202, end: 20221216
  3. LEVOFLOXACIN [Suspect]
     Active Substance: LEVOFLOXACIN
     Dosage: 250 MG
     Route: 048
     Dates: start: 20221202, end: 20221216
  4. CLOFAZIMINE [Suspect]
     Active Substance: CLOFAZIMINE
     Dosage: 100 MG
     Route: 048
     Dates: start: 20221202, end: 20221216
  5. BEDAQUILINE [Suspect]
     Active Substance: BEDAQUILINE
     Dosage: 100 MG
     Route: 048
     Dates: start: 20221202, end: 20221216
  6. ACTRAPID [Concomitant]
     Active Substance: INSULIN HUMAN
     Dosage: UNK
     Dates: start: 202202
  7. INSULIN HUMAN [Concomitant]
     Active Substance: INSULIN HUMAN
     Dosage: UNK
     Dates: start: 202202

REACTIONS (1)
  - Haemoptysis [Unknown]

NARRATIVE: CASE EVENT DATE: 20221215
